FAERS Safety Report 9643373 (Version 2)
Quarter: 2013Q4

REPORT INFORMATION
  Report Type: Report from Study
  Country: KR (occurrence: KR)
  Receive Date: 20131024
  Receipt Date: 20131024
  Transmission Date: 20140711
  Serious: Yes (Hospitalization)
  Sender: FDA-Public Use
  Company Number: KR-OTSUKA-US-2013-11938

PATIENT
  Age: 63 Year
  Sex: Female

DRUGS (4)
  1. BUSULFEX [Suspect]
     Indication: DIFFUSE LARGE B-CELL LYMPHOMA
     Dosage: 19.2 MG/KG, QD
     Route: 042
     Dates: start: 20101112, end: 20101117
  2. ETOPOSIDE [Suspect]
     Indication: DIFFUSE LARGE B-CELL LYMPHOMA
     Dosage: UNK
     Dates: start: 20101112, end: 20101117
  3. CYTARABINE [Suspect]
     Indication: DIFFUSE LARGE B-CELL LYMPHOMA
     Dosage: UNK
     Dates: start: 20101112, end: 20101117
  4. MELPHALAN [Suspect]
     Indication: DIFFUSE LARGE B-CELL LYMPHOMA
     Dosage: UNK
     Dates: start: 20101112, end: 20101117

REACTIONS (3)
  - Nausea [Recovered/Resolved]
  - Cough [Recovered/Resolved]
  - Rhinorrhoea [Recovered/Resolved]
